FAERS Safety Report 9916830 (Version 1)
Quarter: 2014Q1

REPORT INFORMATION
  Report Type: Spontaneous
  Country: US (occurrence: US)
  Receive Date: 20140221
  Receipt Date: 20140221
  Transmission Date: 20141002
  Serious: No
  Sender: FDA-Public Use
  Company Number: US-BAYER-2014-015535

PATIENT
  Age: 64 Year
  Sex: Male

DRUGS (1)
  1. FINACEA [Suspect]
     Indication: ROSACEA
     Dosage: UNK UNK, PRN
     Route: 061
     Dates: start: 201311

REACTIONS (4)
  - Headache [None]
  - Pain [None]
  - Erythema [None]
  - Rash [None]
